FAERS Safety Report 7679558-5 (Version None)
Quarter: 2011Q3

REPORT INFORMATION
  Report Type: 
  Country: None (occurrence: None)
  Receive Date: 20110809
  Receipt Date: 20110727
  Transmission Date: 20111222
  Serious: Yes (Other)
  Sender: FDA-Public Use
  Company Number: 1000022682

PATIENT
  Age: 79 Year
  Sex: Male

DRUGS (1)
  1. ROFLUMILAST (ROFLUMILAST) (TABLETS) [Suspect]
     Indication: CHRONIC OBSTRUCTIVE PULMONARY DISEASE
     Dosage: (500 MCG)
     Dates: start: 20110318, end: 20110324

REACTIONS (5)
  - ANXIETY [None]
  - HOT FLUSH [None]
  - INSOMNIA [None]
  - WEIGHT DECREASED [None]
  - DIARRHOEA [None]
